FAERS Safety Report 8827259 (Version 2)
Quarter: 2012Q4

REPORT INFORMATION
  Report Type: Report from Study
  Country: BE (occurrence: BE)
  Receive Date: 20121005
  Receipt Date: 20121008
  Transmission Date: 20130627
  Serious: Yes (Hospitalization)
  Sender: FDA-Public Use
  Company Number: BE-ROCHE-1134338

PATIENT
  Age: 51 Year
  Sex: Female
  Weight: 71 kg

DRUGS (4)
  1. MABTHERA [Suspect]
     Indication: LYMPHOMA
     Dosage: Dose concentration: 0.69 MG/ML, last dose: 04/Jul/2012
     Route: 042
     Dates: start: 20111021
  2. BENDAMUSTINE [Suspect]
     Indication: LYMPHOMA
     Dosage: last dose: 08/Mar/2012
     Route: 042
     Dates: start: 20111021
  3. EMCORETIC MITIS [Concomitant]
     Indication: HYPERTENSION
     Route: 065
     Dates: start: 1992
  4. OLMETEC PLUS [Concomitant]
     Indication: HYPERTENSION
     Route: 065
     Dates: start: 1992

REACTIONS (1)
  - Vaginal ulceration [Not Recovered/Not Resolved]
